FAERS Safety Report 13993345 (Version 3)
Quarter: 2017Q4

REPORT INFORMATION
  Report Type: Spontaneous
  Country: DE (occurrence: DE)
  Receive Date: 20170920
  Receipt Date: 20171018
  Transmission Date: 20180321
  Serious: Yes (Death, Hospitalization)
  Sender: FDA-Public Use
  Company Number: PHHY2017DE138022

PATIENT
  Age: 81 Year
  Sex: Male
  Weight: 55 kg

DRUGS (9)
  1. BISOPROLOL [Concomitant]
     Active Substance: BISOPROLOL
     Indication: CARDIAC FAILURE
     Dosage: 1 DF, QD
     Route: 048
  2. BENZBROMARON [Concomitant]
     Indication: NEPHROLITHIASIS
     Dosage: 1 DF, QD
     Route: 048
  3. FUROSEMIDE. [Concomitant]
     Active Substance: FUROSEMIDE
     Indication: RENAL FAILURE
     Dosage: 1 DF, QD
     Route: 048
  4. NOVODIGAL [Concomitant]
     Active Substance: .BETA.-ACETYLDIGOXIN
     Indication: CARDIAC FAILURE
     Dosage: 1 DF, QD
     Route: 048
  5. ENTRESTO [Suspect]
     Active Substance: SACUBITRIL\VALSARTAN
     Indication: CARDIAC FAILURE CHRONIC
     Dosage: 1 DF(50 MG), QD
     Route: 048
     Dates: start: 20160929, end: 20161128
  6. ENTRESTO [Suspect]
     Active Substance: SACUBITRIL\VALSARTAN
     Indication: CARDIAC FAILURE CHRONIC
  7. SITAGLIPTIN [Concomitant]
     Active Substance: SITAGLIPTIN
     Indication: DIABETES MELLITUS
     Dosage: 1 DF, QD
     Route: 048
  8. XIPAMID [Concomitant]
     Active Substance: XIPAMIDE
     Indication: RENAL FAILURE
     Dosage: 1 DF, QD
     Route: 048
  9. EPLERENONE. [Concomitant]
     Active Substance: EPLERENONE
     Indication: CARDIAC FAILURE
     Dosage: 1 DF, QD
     Route: 048

REACTIONS (4)
  - Renal failure [Fatal]
  - Rash pustular [Recovering/Resolving]
  - Cardiac failure [Fatal]
  - Underdose [Unknown]

NARRATIVE: CASE EVENT DATE: 20161101
